FAERS Safety Report 24998428 (Version 1)
Quarter: 2025Q1

REPORT INFORMATION
  Report Type: Spontaneous
  Country: US (occurrence: US)
  Receive Date: 20250222
  Receipt Date: 20250222
  Transmission Date: 20250409
  Serious: No
  Sender: SANOFI AVENTIS
  Company Number: US-SANOFI-02407976

PATIENT
  Sex: Male

DRUGS (1)
  1. DUPIXENT [Suspect]
     Active Substance: DUPILUMAB
     Route: 065

REACTIONS (6)
  - Diarrhoea [Recovered/Resolved]
  - Headache [Recovered/Resolved]
  - Dizziness [Recovered/Resolved]
  - Fatigue [Recovered/Resolved]
  - Abdominal distension [Recovered/Resolved]
  - Flatulence [Recovered/Resolved]
